FAERS Safety Report 8150922-3 (Version None)
Quarter: 2012Q1

REPORT INFORMATION
  Report Type: 
  Country: None (occurrence: None)
  Receive Date: 20120220
  Receipt Date: 20120215
  Transmission Date: 20120608
  Serious: Yes (Life-Threatening, Hospitalization, Other)
  Sender: FDA-Public Use
  Company Number: GR-ABBOTT-12P-066-0895949-00

PATIENT
  Age: 34 Year
  Sex: Male
  Weight: 72 kg

DRUGS (5)
  1. OLANZAPINE [Concomitant]
     Indication: DEPRESSION
  2. BROMAZEPAM [Concomitant]
     Indication: DEPRESSION
  3. AZATHIOPRINE [Concomitant]
     Indication: CROHN'S DISEASE
  4. HUMIRA [Suspect]
     Indication: CROHN'S DISEASE
     Route: 058
     Dates: start: 20110901, end: 20111201
  5. BUPROPION HCL [Concomitant]
     Indication: DEPRESSION

REACTIONS (3)
  - PYREXIA [None]
  - RESPIRATORY TRACT INFECTION [None]
  - TUBERCULOSIS [None]
